FAERS Safety Report 9297708 (Version 1)
Quarter: 2013Q2

REPORT INFORMATION
  Report Type: Spontaneous
  Country: US (occurrence: US)
  Receive Date: 20130520
  Receipt Date: 20130520
  Transmission Date: 20140414
  Serious: No
  Sender: FDA-Public Use
  Company Number: US-PFIZER INC-2013152791

PATIENT
  Age: 60 Year
  Sex: Female
  Weight: 96.6 kg

DRUGS (8)
  1. GEODON [Suspect]
     Indication: PARANOIA
     Dosage: 40 MG, 1X/DAY
     Dates: start: 201212
  2. ZIPRASIDONE HCL [Suspect]
     Indication: PARANOIA
     Dosage: 40 MG, 1X/DAY
  3. CITALOPRAM [Concomitant]
     Indication: DEPRESSION
     Dosage: 20 MG, DAILY
  4. BUDEPRION XL [Concomitant]
     Indication: DEPRESSION
     Dosage: 300 MG, DAILY
  5. TOPIRAMATE [Concomitant]
     Indication: ANXIETY
     Dosage: 100 MG, 2X/DAY
  6. OMEPRAZOLE [Concomitant]
     Indication: GASTROOESOPHAGEAL REFLUX DISEASE
     Dosage: 40 MG, 2X/DAY
  7. LIPITOR [Concomitant]
     Dosage: 40 MG, UNK
  8. CLARITIN-D [Concomitant]
     Indication: HYPERSENSITIVITY
     Dosage: 240 MG, UNK

REACTIONS (1)
  - Epigastric discomfort [Not Recovered/Not Resolved]
